FAERS Safety Report 5588555-5 (Version None)
Quarter: 2007Q4

REPORT INFORMATION
  Report Type: 
  Country: None (occurrence: None)
  Receive Date: 20071201
  Receipt Date: 20070813
  Transmission Date: 20080405
  Serious: Yes (Other)
  Sender: FDA-Public Use
  Company Number: 002#2#2007-00141

PATIENT
  Age: 88 Year
  Sex: Male

DRUGS (6)
  1. NEUPRO [Suspect]
     Indication: PARKINSON'S DISEASE
     Dosage: 2MG/24H,,TRANSDERMAL
     Route: 062
  2. SYNTHROID [Concomitant]
  3. METOPROLOL TARTRATE [Concomitant]
  4. CARBIDOPA AND LEVODOPA [Concomitant]
  5. PAXIL [Concomitant]
  6. MIRAPEX [Concomitant]

REACTIONS (2)
  - BLOOD PRESSURE INCREASED [None]
  - TREMOR [None]
